FAERS Safety Report 6097156-4 (Version None)
Quarter: 2009Q1

REPORT INFORMATION
  Report Type: 
  Country: None (occurrence: None)
  Receive Date: 20090226
  Receipt Date: 20090226
  Transmission Date: 20090719
  Serious: Yes (Disabling)
  Sender: FDA-Public Use
  Company Number: None

PATIENT
  Age: 77 Year
  Sex: Male
  Weight: 76.2043 kg

DRUGS (2)
  1. METOCLOPRAMIDE [Suspect]
     Indication: PROCEDURAL NAUSEA
     Dosage: 10MG EVERY 8HRS IV
     Route: 042
     Dates: start: 20090109, end: 20090110
  2. METOCLOPRAMIDE [Suspect]
     Indication: PROCEDURAL VOMITING
     Dosage: 10MG EVERY 8HRS IV
     Route: 042
     Dates: start: 20090109, end: 20090110

REACTIONS (1)
  - WHITE BLOOD CELL COUNT DECREASED [None]
